FAERS Safety Report 4757428-X (Version None)
Quarter: 2005Q3

REPORT INFORMATION
  Report Type: 
  Country: None (occurrence: None)
  Receive Date: 20050829
  Receipt Date: 20050817
  Transmission Date: 20060218
  Serious: Yes (Hospitalization)
  Sender: FDA-Public Use
  Company Number: 2005116620

PATIENT
  Sex: Female

DRUGS (6)
  1. ALDACTONE [Suspect]
     Indication: ILL-DEFINED DISORDER
     Dosage: SINGLE DOSE
     Dates: start: 20050612, end: 20050612
  2. GABAPENTIN [Suspect]
     Indication: ILL-DEFINED DISORDER
     Dosage: SINGLE DOSE
     Dates: start: 20050612, end: 20050612
  3. COREG [Suspect]
     Indication: ILL-DEFINED DISORDER
     Dosage: 25 MG, SINGLE DOSE, ORAL
     Route: 048
     Dates: start: 20050612, end: 20050612
  4. VASOTEC [Suspect]
     Indication: ILL-DEFINED DISORDER
     Dosage: SINGLE DOSE
     Dates: start: 20050612, end: 20050612
  5. TOPROL-XL [Concomitant]
  6. INSULIN [Concomitant]

REACTIONS (6)
  - DIZZINESS [None]
  - HEADACHE [None]
  - HYPOTENSION [None]
  - SWELLING [None]
  - VISION BLURRED [None]
  - WRONG DRUG ADMINISTERED [None]
